FAERS Safety Report 4323622-5 (Version None)
Quarter: 2004Q1

REPORT INFORMATION
  Report Type: 
  Country: None (occurrence: None)
  Receive Date: 20040323
  Receipt Date: 20040308
  Transmission Date: 20041129
  Serious: No
  Sender: FDA-Public Use
  Company Number: 2004PK00363

PATIENT
  Age: 61 Year
  Sex: Female
  Weight: 95 kg

DRUGS (4)
  1. SEROQUEL [Suspect]
     Indication: DELUSION
     Dosage: 400 MG DAILY PO
     Route: 048
     Dates: start: 20030701, end: 20040219
  2. SEROQUEL [Suspect]
     Indication: DEPRESSION
     Dosage: 400 MG DAILY PO
     Route: 048
     Dates: start: 20030701, end: 20040219
  3. SEPRAM [Concomitant]
  4. HYPNOREX [Concomitant]

REACTIONS (1)
  - LEUKOPENIA [None]
